FAERS Safety Report 6850918-5 (Version None)
Quarter: 2010Q3

REPORT INFORMATION
  Report Type: 
  Country: None (occurrence: None)
  Receive Date: 20100716
  Receipt Date: 20071023
  Transmission Date: 20110219
  Serious: No
  Sender: FDA-Public Use
  Company Number: US-PFIZER INC-2007090653

PATIENT
  Sex: Female
  Weight: 54.5 kg

DRUGS (2)
  1. CHANTIX [Suspect]
     Indication: SMOKING CESSATION THERAPY
     Dates: start: 20071008
  2. AMBIEN [Concomitant]
     Indication: EMOTIONAL DISORDER

REACTIONS (4)
  - ABNORMAL DREAMS [None]
  - AGGRESSION [None]
  - IRRITABILITY [None]
  - MIDDLE INSOMNIA [None]
